FAERS Safety Report 7610331-X (Version None)
Quarter: 2011Q3

REPORT INFORMATION
  Report Type: 
  Country: None (occurrence: None)
  Receive Date: 20110707
  Receipt Date: 20110623
  Transmission Date: 20111222
  Serious: Yes (Life-Threatening, Hospitalization, Other)
  Sender: FDA-Public Use
  Company Number: 2011P1007529

PATIENT
  Age: 28 Year
  Sex: Female

DRUGS (4)
  1. HARTMANN'S SOLUTION [Concomitant]
  2. FENTANYL [Suspect]
     Indication: ANALGESIC THERAPY
     Dosage: ED
     Route: 008
     Dates: start: 20110530, end: 20110530
  3. BUPIVACAINE HCL [Suspect]
     Indication: ANALGESIC THERAPY
     Dosage: ED
     Route: 008
     Dates: start: 20110530, end: 20110530
  4. RANITIDINE [Concomitant]

REACTIONS (4)
  - CAESAREAN SECTION [None]
  - UNRESPONSIVE TO STIMULI [None]
  - MATERNAL EXPOSURE DURING PREGNANCY [None]
  - CARDIO-RESPIRATORY ARREST [None]
